FAERS Safety Report 8214633-8 (Version None)
Quarter: 2012Q1

REPORT INFORMATION
  Report Type: 
  Country: None (occurrence: None)
  Receive Date: 20120316
  Receipt Date: 20120313
  Transmission Date: 20120608
  Serious: Yes (Hospitalization, Other)
  Sender: FDA-Public Use
  Company Number: FR-BAYER-2012-016236

PATIENT
  Age: 63 Year
  Sex: Male

DRUGS (21)
  1. FUROSEMIDE [Suspect]
     Dosage: 60 MG, QD
     Route: 042
     Dates: start: 20120117, end: 20120218
  2. ACETAMINOPHEN [Suspect]
     Indication: BACK PAIN
     Dosage: 4 G, QD
     Route: 048
     Dates: start: 20120116
  3. MORPHINE SULFATE [Suspect]
     Indication: BACK PAIN
     Dosage: 10 MG, Q4HR
     Route: 048
     Dates: start: 20120119
  4. PREDNISOLONE [Concomitant]
     Dosage: 40 MG, OM
  5. ACETAMINOPHEN [Concomitant]
     Indication: BACK PAIN
     Dosage: DAILY DOSE 4 G
     Route: 042
     Dates: start: 20120117, end: 20120128
  6. ARIXTRA [Concomitant]
     Dosage: 2.5 MG, QD
     Route: 058
     Dates: start: 20120216
  7. FLUCONAZOLE [Suspect]
     Dosage: 100 MG, QD
     Route: 048
     Dates: start: 20120119
  8. VENTOLIN [Suspect]
     Indication: DYSPNOEA
     Dosage: UNK UNK, QID
     Route: 055
     Dates: start: 20120120
  9. POTASSIUM CHLORIDE [Suspect]
     Dosage: 600 MG, TID
     Route: 048
     Dates: start: 20120124
  10. MOXIFLOXACIN HCL [Suspect]
     Indication: LUNG DISORDER
     Dosage: 400 MG, QD
     Route: 048
     Dates: start: 20120125, end: 20120205
  11. POLYETHYLENE GLYCOL [Suspect]
     Dosage: 10 G, BID
     Route: 048
     Dates: start: 20120119
  12. ZOMETA [Suspect]
     Indication: HYPERCALCAEMIA
     Dosage: 3.300 MG, ONCE
     Route: 042
     Dates: start: 20120119, end: 20120119
  13. METHYLPREDNISOLONE [Concomitant]
     Dosage: UNK UNK, BID
     Route: 042
     Dates: start: 20120119, end: 20120201
  14. MORPHINE SULFATE [Concomitant]
     Indication: BACK PAIN
     Dosage: DAILY DOSE 2 DF
     Route: 048
     Dates: start: 20120119, end: 20120127
  15. CORDARONE [Suspect]
     Dosage: 1 G, QD
     Route: 048
     Dates: start: 20120201, end: 20120215
  16. PREDNISOLONE [Suspect]
     Dosage: 20 MG, BID
     Route: 048
     Dates: start: 20120124
  17. IPRATROPIUM BROMIDE [Suspect]
     Indication: DYSPNOEA
     Dosage: UNK UNK, QID
     Route: 055
     Dates: start: 20120120
  18. HEPARIN [Concomitant]
  19. LOVENOX [Suspect]
     Dosage: 4000 IU, QD
     Route: 058
     Dates: start: 20120123, end: 20120215
  20. TRAMADOL HCL [Concomitant]
     Indication: BACK PAIN
     Dosage: DAILY DOSE 300 MG
     Route: 042
     Dates: start: 20120117, end: 20120121
  21. PANTOPRAZOLE SODIUM [Suspect]
     Dosage: 20 MG, QD
     Route: 048
     Dates: start: 20120124

REACTIONS (6)
  - THROMBOCYTOPENIA [None]
  - ANAEMIA [None]
  - NEUTROPHIL COUNT DECREASED [None]
  - WHITE BLOOD CELL COUNT DECREASED [None]
  - METASTASES TO BONE [None]
  - PLATELET COUNT DECREASED [None]
